FAERS Safety Report 9641214 (Version 1)
Quarter: 2013Q4

REPORT INFORMATION
  Report Type: Spontaneous
  Country: US (occurrence: None)
  Receive Date: 20131022
  Receipt Date: 20131022
  Transmission Date: 20140711
  Serious: Yes (Hospitalization)
  Sender: FDA-Public Use
  Company Number: None

PATIENT
  Age: 72 None
  Sex: Male
  Weight: 81.8 kg

DRUGS (1)
  1. ACETAMINOPHEN\HYDROCODONE [Suspect]
     Indication: PAIN
     Dates: start: 20130809, end: 20130812

REACTIONS (4)
  - Somnolence [None]
  - Lethargy [None]
  - Asthenia [None]
  - Mental status changes [None]
